FAERS Safety Report 8037437-8 (Version None)
Quarter: 2012Q1

REPORT INFORMATION
  Report Type: 
  Country: None (occurrence: None)
  Receive Date: 20120111
  Receipt Date: 20120105
  Transmission Date: 20120608
  Serious: Yes (Other)
  Sender: FDA-Public Use
  Company Number: CA-ROCHE-GNE307291

PATIENT
  Sex: Male

DRUGS (1)
  1. XOLAIR [Suspect]
     Indication: ASTHMA
     Dosage: 375 MG, Q4W. VIAL
     Route: 058
     Dates: start: 20060623

REACTIONS (5)
  - NASAL POLYPS [None]
  - PYREXIA [None]
  - SINUS CONGESTION [None]
  - ASTHMA [None]
  - NASOPHARYNGITIS [None]
